FAERS Safety Report 6671376-X (Version None)
Quarter: 2010Q2

REPORT INFORMATION
  Report Type: 
  Country: None (occurrence: None)
  Receive Date: 20100407
  Receipt Date: 20100406
  Transmission Date: 20101027
  Serious: Yes (Hospitalization)
  Sender: FDA-Public Use
  Company Number: A0853745A

PATIENT
  Age: 56 Year
  Sex: Male

DRUGS (25)
  1. MELPHALAN HYDROCHLORIDE [Suspect]
     Indication: AMYLOIDOSIS
     Route: 048
     Dates: start: 20090311
  2. VELCADE [Suspect]
     Indication: AMYLOIDOSIS
     Dosage: .7MGM2 CYCLIC
     Route: 042
     Dates: start: 20090311
  3. DEXAMETHASONE [Suspect]
     Indication: AMYLOIDOSIS
     Dosage: 20MG CYCLIC
     Route: 048
     Dates: start: 20090311
  4. ACYCLOVIR [Concomitant]
  5. ASPIRIN [Concomitant]
  6. CENTRUM SILVER [Concomitant]
  7. CITRUCEL [Concomitant]
  8. CYMBALTA [Concomitant]
  9. ZETIA [Concomitant]
  10. FLUCONAZOLE [Concomitant]
  11. FLOVENT [Concomitant]
  12. LASIX [Concomitant]
  13. NEURONTIN [Concomitant]
  14. GLUCOPHAGE [Concomitant]
  15. POTASSIUM CHLORIDE [Concomitant]
  16. LANTUS [Concomitant]
  17. LORAZEPAM [Concomitant]
  18. METOPROLOL TARTRATE [Concomitant]
  19. MUCINEX [Concomitant]
  20. NOVOLOG [Concomitant]
  21. PROCHLORPERAZINE [Concomitant]
  22. ROSIGLITAZONE [Concomitant]
  23. SIMVASTATIN [Concomitant]
  24. SULFAMETHOXAZOLE [Concomitant]
  25. ZITHROMAX [Concomitant]

REACTIONS (10)
  - BLOOD ALKALINE PHOSPHATASE INCREASED [None]
  - BLOOD GLUCOSE INCREASED [None]
  - BLOOD SODIUM DECREASED [None]
  - BUNDLE BRANCH BLOCK RIGHT [None]
  - DYSPNOEA [None]
  - HAEMATOCRIT DECREASED [None]
  - HAEMOGLOBIN DECREASED [None]
  - PNEUMONIA [None]
  - PYREXIA [None]
  - SINUS TACHYCARDIA [None]
